FAERS Safety Report 6431154-3 (Version None)
Quarter: 2009Q4

REPORT INFORMATION
  Report Type: 
  Country: None (occurrence: None)
  Receive Date: 20091105
  Receipt Date: 20091105
  Transmission Date: 20100525
  Serious: Yes (Hospitalization)
  Sender: FDA-Public Use
  Company Number: None

PATIENT
  Age: 63 Year
  Sex: Female
  Weight: 65.5 kg

DRUGS (2)
  1. RAD001 5 MG DAILY ORAL [Suspect]
     Indication: NON-SMALL CELL LUNG CANCER
     Dosage: 5 MG DAILY ORAL
     Route: 048
     Dates: start: 20091021, end: 20091028
  2. DOCETAXEL 60MG/M2 EVERY 21 DAYS IV [Suspect]
     Indication: NON-SMALL CELL LUNG CANCER
     Dosage: 60MG/M2 EVERY 21 DAYS IV
     Route: 042
     Dates: start: 20091021

REACTIONS (5)
  - BACTERIAL INFECTION [None]
  - BLOOD CULTURE POSITIVE [None]
  - CHEST PAIN [None]
  - OROPHARYNGEAL PAIN [None]
  - PYREXIA [None]
